FAERS Safety Report 12218177 (Version 1)
Quarter: 2016Q1

REPORT INFORMATION
  Report Type: Spontaneous
  Country: US (occurrence: US)
  Receive Date: 20160329
  Receipt Date: 20160329
  Transmission Date: 20160526
  Serious: Yes (Hospitalization)
  Sender: FDA-Public Use
  Company Number: US-SA-2016SA059144

PATIENT
  Sex: Female

DRUGS (5)
  1. SOLOSTAR [Concomitant]
     Active Substance: DEVICE
  2. HUMALOG [Concomitant]
     Active Substance: INSULIN LISPRO
  3. NOVOLOG [Suspect]
     Active Substance: INSULIN ASPART
     Route: 065
  4. AFREZZA [Concomitant]
     Active Substance: INSULIN HUMAN
  5. LANTUS SOLOSTAR [Suspect]
     Active Substance: INSULIN GLARGINE
     Indication: DIABETES MELLITUS
     Route: 065

REACTIONS (17)
  - Eye swelling [Unknown]
  - Bone pain [Unknown]
  - Cough [Unknown]
  - Dyspnoea [Unknown]
  - Throat tightness [Unknown]
  - Joint crepitation [Unknown]
  - Pruritus generalised [Unknown]
  - Condition aggravated [Unknown]
  - Chest pain [Unknown]
  - Sinus disorder [Unknown]
  - Muscular weakness [Unknown]
  - Muscle atrophy [Unknown]
  - Pneumothorax [Unknown]
  - Wheezing [Unknown]
  - Feeling hot [Unknown]
  - Nasal congestion [Unknown]
  - Arthralgia [Unknown]
